FAERS Safety Report 4832660-5 (Version None)
Quarter: 2005Q4

REPORT INFORMATION
  Report Type: 
  Country: None (occurrence: None)
  Receive Date: 20051117
  Receipt Date: 20051109
  Transmission Date: 20060501
  Serious: Yes (Other)
  Sender: FDA-Public Use
  Company Number: GBS051018705

PATIENT
  Age: 10 Year
  Sex: Male
  Weight: 30 kg

DRUGS (2)
  1. STRATTERA [Suspect]
     Indication: ATTENTION DEFICIT/HYPERACTIVITY DISORDER
     Dosage: 25 MG
     Dates: start: 20040722, end: 20050801
  2. STRATTERA [Suspect]
     Indication: AUTISM SPECTRUM DISORDER
     Dosage: 25 MG
     Dates: start: 20040722, end: 20050801

REACTIONS (7)
  - BITE [None]
  - DEPRESSED MOOD [None]
  - INTENTIONAL SELF-INJURY [None]
  - LACERATION [None]
  - SEDATION [None]
  - SELF ESTEEM DECREASED [None]
  - SOCIAL AVOIDANT BEHAVIOUR [None]
